FAERS Safety Report 9247040 (Version 2)
Quarter: 2013Q3

REPORT INFORMATION
  Report Type: Spontaneous
  Country: US (occurrence: US)
  Receive Date: 20130423
  Receipt Date: 20130911
  Transmission Date: 20140515
  Serious: Yes (Other)
  Sender: FDA-Public Use
  Company Number: US-ASTRAZENECA-2011SE12721

PATIENT
  Age: 304 Month
  Sex: Female

DRUGS (17)
  1. SEROQUEL [Suspect]
     Dosage: TAKE ONE HALF TABLET BY MOUTH AT BED TIME
     Route: 048
     Dates: start: 20071102
  2. SEROQUEL [Suspect]
     Dosage: TAKE ONE HALF TABLET BY MOUTH AT BED TIME
     Route: 048
     Dates: start: 20080128
  3. SEROQUEL [Suspect]
     Dosage: TAKE ONE HALF TABLET BY MOUTH AT BED TIME
     Route: 048
     Dates: start: 20080318
  4. ANXIETY MEDICATION [Concomitant]
  5. THYROID MEDICATION [Concomitant]
  6. CODEINE/ACETAMINOPHEN [Concomitant]
     Indication: PAIN
     Dosage: 60MG/300 MG, TAKE 2 TABLETS BY MOUTH EVERY 4 HOURS AS NEEDED
     Route: 048
     Dates: start: 20050723
  7. DOCUSATE NA/SENNOSIDES [Concomitant]
     Indication: CONSTIPATION
     Dosage: 50 MG/8.6 MG, TAKE 2 TABLETS BY MOUTH 3 TIMES A DAY
     Route: 048
     Dates: start: 20051104
  8. HYDROCODONE/ACETAMINOPHEN [Concomitant]
     Indication: PAIN
     Dosage: 5/500 MG, TAKE 2 TABLETS BY MOUTH EVERY 6 HOURS AS NEEDED
     Route: 048
     Dates: start: 20051104
  9. SULFAMETHOXAZOLE/TRIMETH [Concomitant]
     Indication: INFECTION
     Dosage: 800/160 MG, TAKE 1 TABLET BY MOUTH EVERY 12 HOURS
     Route: 048
     Dates: start: 20051106
  10. METHYLPREDNISOLONE [Concomitant]
     Route: 048
     Dates: start: 20060106
  11. OXYBUTYNIN CHLORIDE [Concomitant]
     Route: 048
     Dates: start: 20060709
  12. TRAZADONE HCL [Concomitant]
     Indication: INSOMNIA
     Dosage: TAKE 1 TABLET BY MOUTH AT BED TIME ONE HOUR PRIOR TO SLEEP
     Route: 048
     Dates: start: 20060830
  13. FLUVOXAMINE MALEATE [Concomitant]
     Indication: OBSESSIVE-COMPULSIVE DISORDER
     Dosage: TAKE 1 TABLET BY MOUTH AT BED TIME
     Route: 048
     Dates: start: 20070712
  14. PAROXETINE HCL [Concomitant]
     Indication: DEPRESSION
     Route: 048
     Dates: start: 20070712
  15. LORAZEPAM [Concomitant]
     Indication: ANXIETY
     Dosage: TAKE ONE- HALF TABLET BY MOUTH TWICE A DAY AS NEEDED
     Route: 048
     Dates: start: 20071102
  16. SERTRALINE HCL [Concomitant]
     Dosage: TAKE ONE- HALF TABLET BY MOUTH EVERY MORNING FOR 7 DAYS THEN TAKE 1 TABLET EVERY MORNING
     Route: 048
     Dates: start: 20080320
  17. CITALOPRAM HYDROBROMIDE [Concomitant]
     Dosage: TAKE ONE- HALF TABLET BY MOUTH EVERY 24 HOURS FOR 7 DAYS THEN TAKE 1 TABLET EVERY 24 HOURS
     Route: 048
     Dates: start: 20080612

REACTIONS (3)
  - Diabetic coma [Unknown]
  - Pancreatitis [Unknown]
  - Type 2 diabetes mellitus [Unknown]
